FAERS Safety Report 7074396-9 (Version None)
Quarter: 2010Q4

REPORT INFORMATION
  Report Type: 
  Country: None (occurrence: None)
  Receive Date: 20101029
  Receipt Date: 20101015
  Transmission Date: 20110411
  Serious: Yes (Other)
  Sender: FDA-Public Use
  Company Number: US-AMGEN-USASP2010000193

PATIENT

DRUGS (2)
  1. NPLATE [Suspect]
     Indication: IDIOPATHIC THROMBOCYTOPENIC PURPURA
     Dates: start: 20090908, end: 20100713
  2. IMMU-G [Concomitant]
     Dosage: UNK
     Route: 042
     Dates: start: 20080208

REACTIONS (1)
  - T-CELL LYMPHOMA [None]
